FAERS Safety Report 23453842 (Version 4)
Quarter: 2024Q2

REPORT INFORMATION
  Report Type: Report from Study
  Country: US (occurrence: US)
  Receive Date: 20240129
  Receipt Date: 20240402
  Transmission Date: 20240716
  Serious: Yes (Hospitalization, Other)
  Sender: FDA-Public Use
  Company Number: US-ABBVIE-5605320

PATIENT
  Age: 72 Year
  Sex: Male
  Weight: 68 kg

DRUGS (3)
  1. DUOPA [Suspect]
     Active Substance: CARBIDOPA\LEVODOPA
     Indication: Parkinson^s disease
     Dosage: MORNING DOSE: 11 ML, CONTINUOUS DOSE: 3.1 ML/HR, EXTRA DOSE: 1.5 ML ?FREQUENCY TEXT: 1 CASSETTE U...
     Route: 050
     Dates: start: 20230217
  2. DUOPA [Suspect]
     Active Substance: CARBIDOPA\LEVODOPA
  3. CARBIDOPA\LEVODOPA [Concomitant]
     Active Substance: CARBIDOPA\LEVODOPA
     Indication: Parkinson^s disease

REACTIONS (5)
  - Acute kidney injury [Not Recovered/Not Resolved]
  - Unevaluable event [Recovered/Resolved]
  - Parkinson^s disease [Unknown]
  - Seizure like phenomena [Recovered/Resolved]
  - Fall [Unknown]

NARRATIVE: CASE EVENT DATE: 20231201
